FAERS Safety Report 5298749-4 (Version None)
Quarter: 2007Q2

REPORT INFORMATION
  Report Type: 
  Country: None (occurrence: None)
  Receive Date: 20070409
  Receipt Date: 20070328
  Transmission Date: 20071010
  Serious: Yes (Death, Hospitalization, Other)
  Sender: FDA-Public Use
  Company Number: 163-21880-07010130

PATIENT
  Age: 69 Year
  Sex: Female

DRUGS (8)
  1. REVLIMID [Suspect]
     Indication: MULTIPLE MYELOMA
     Dosage: 25 MG, DAILY X 21 DAYS, ORAL
     Route: 048
     Dates: start: 20060221, end: 20061207
  2. DECADRON [Concomitant]
  3. COUMADIN [Concomitant]
  4. CLONIDINE [Concomitant]
  5. FUROSEMIDE (FUROSEMIDE0 [Concomitant]
  6. AVELOX [Concomitant]
  7. HUMULIN 70/30 [Concomitant]
  8. GLIPIZIDE [Concomitant]

REACTIONS (14)
  - ASTHENIA [None]
  - BRADYCARDIA [None]
  - COLONIC POLYP [None]
  - DUODENAL ULCER HAEMORRHAGE [None]
  - EROSIVE DUODENITIS [None]
  - GASTROINTESTINAL HAEMORRHAGE [None]
  - HAEMOGLOBIN DECREASED [None]
  - INTERNATIONAL NORMALISED RATIO INCREASED [None]
  - OESOPHAGEAL ULCER [None]
  - PLATELET COUNT DECREASED [None]
  - PROTHROMBIN TIME PROLONGED [None]
  - PSEUDOMEMBRANOUS COLITIS [None]
  - RESPIRATORY ARREST [None]
  - SHOCK HAEMORRHAGIC [None]
